FAERS Safety Report 4827847-1 (Version None)
Quarter: 2005Q4

REPORT INFORMATION
  Report Type: 
  Country: None (occurrence: None)
  Receive Date: 20051114
  Receipt Date: 20051114
  Transmission Date: 20060501
  Serious: Yes (Disabling)
  Sender: FDA-Public Use
  Company Number: None

PATIENT
  Age: 26 Year
  Sex: Female

DRUGS (1)
  1. OXYCODONE/APAP    OXCODONE/ACETAMINOPHEN  5/325     MALLINCKRODT, INC [Suspect]
     Indication: CAESAREAN SECTION
     Dosage: 2 TABLETS   Q4H   PO
     Route: 048
     Dates: start: 20051109, end: 20051109

REACTIONS (1)
  - PRURITUS GENERALISED [None]
